FAERS Safety Report 9084349 (Version 2)
Quarter: 2013Q1

REPORT INFORMATION
  Report Type: Spontaneous
  Country: GB (occurrence: GB)
  Receive Date: 20130218
  Receipt Date: 20130226
  Transmission Date: 20140127
  Serious: Yes (Other)
  Sender: FDA-Public Use
  Company Number: PHFR2013GB001101

PATIENT
  Sex: Female

DRUGS (1)
  1. VOLTAROL [Suspect]
     Indication: KNEE OPERATION
     Dosage: 50 MG, QD
     Route: 048
     Dates: start: 201204

REACTIONS (5)
  - Post procedural complication [Unknown]
  - Malaise [Unknown]
  - Pain [Unknown]
  - Dyspepsia [Unknown]
  - Eructation [Unknown]
